FAERS Safety Report 14826778 (Version 1)
Quarter: 2018Q2

REPORT INFORMATION
  Report Type: Spontaneous
  Country: US (occurrence: US)
  Receive Date: 20180430
  Receipt Date: 20180430
  Transmission Date: 20180711
  Serious: Yes (Hospitalization, Other)
  Sender: FDA-Public Use
  Company Number: US-ASTRAZENECA-2015SE12779

PATIENT
  Age: 80 Year
  Sex: Female
  Weight: 60.8 kg

DRUGS (12)
  1. BRILINTA [Suspect]
     Active Substance: TICAGRELOR
     Indication: STENT PLACEMENT
     Dosage: ONLY ONE PILL
     Route: 048
     Dates: start: 2015, end: 2016
  2. BRILINTA [Suspect]
     Active Substance: TICAGRELOR
     Indication: STENT PLACEMENT
     Route: 048
     Dates: start: 201305
  3. LIPITOR [Concomitant]
     Active Substance: ATORVASTATIN CALCIUM
     Indication: BLOOD CHOLESTEROL ABNORMAL
     Route: 048
  4. CARVEDILOL. [Concomitant]
     Active Substance: CARVEDILOL
     Indication: CARDIAC DISORDER
     Route: 048
     Dates: start: 201305
  5. LISINOPRIL. [Suspect]
     Active Substance: LISINOPRIL
     Indication: BLOOD PRESSURE ABNORMAL
     Route: 048
     Dates: start: 1980
  6. BRILINTA [Suspect]
     Active Substance: TICAGRELOR
     Indication: MYOCARDIAL INFARCTION
     Dosage: ONLY ONE PILL
     Route: 048
     Dates: start: 2015, end: 2016
  7. VITAMIN D [Concomitant]
     Active Substance: CHOLECALCIFEROL
  8. BRILINTA [Suspect]
     Active Substance: TICAGRELOR
     Indication: MYOCARDIAL INFARCTION
     Route: 048
     Dates: start: 201305
  9. BRILINTA [Suspect]
     Active Substance: TICAGRELOR
     Indication: STENT PLACEMENT
     Dosage: INCREASED HER DOSAGE TO TWO PILLS
     Route: 048
  10. IBANDRONATE SODIUM. [Concomitant]
     Active Substance: IBANDRONATE SODIUM
     Indication: BONE DISORDER
     Route: 048
  11. BRILINTA [Suspect]
     Active Substance: TICAGRELOR
     Indication: MYOCARDIAL INFARCTION
     Dosage: INCREASED HER DOSAGE TO TWO PILLS
     Route: 048
  12. ASPIRIN. [Concomitant]
     Active Substance: ASPIRIN
     Indication: SUPPLEMENTATION THERAPY
     Route: 048
     Dates: start: 201305

REACTIONS (9)
  - Haemorrhage [Unknown]
  - Femur fracture [Unknown]
  - Urinary incontinence [Unknown]
  - Off label use [Not Recovered/Not Resolved]
  - Fall [Unknown]
  - Wrist fracture [Unknown]
  - Transient ischaemic attack [Unknown]
  - Adverse event [Unknown]
  - Alopecia [Unknown]

NARRATIVE: CASE EVENT DATE: 2007
